FAERS Safety Report 6750931-2 (Version None)
Quarter: 2010Q2

REPORT INFORMATION
  Report Type: 
  Country: None (occurrence: None)
  Receive Date: 20100602
  Receipt Date: 20100524
  Transmission Date: 20101027
  Serious: Yes (Hospitalization)
  Sender: FDA-Public Use
  Company Number: PHHY2010US33358

PATIENT
  Sex: Female
  Weight: 86 kg

DRUGS (2)
  1. EXJADE [Suspect]
     Indication: SICKLE CELL ANAEMIA
     Dosage: 500 MG, TID
     Route: 048
  2. EXJADE [Suspect]
     Dosage: 500 MG, BID
     Route: 048

REACTIONS (3)
  - DIARRHOEA [None]
  - MUSCLE SPASMS [None]
  - PYREXIA [None]
